FAERS Safety Report 25756303 (Version 2)
Quarter: 2025Q3

REPORT INFORMATION
  Report Type: Spontaneous
  Country: US (occurrence: US)
  Receive Date: 20250903
  Receipt Date: 20250904
  Transmission Date: 20251020
  Serious: Yes (Other)
  Sender: PFIZER
  Company Number: US-MLMSERVICE-20250825-PI623151-00229-1

PATIENT
  Age: 66 Year
  Sex: Female

DRUGS (3)
  1. MORPHINE SULFATE [Suspect]
     Active Substance: MORPHINE SULFATE
     Indication: Pain
     Dosage: INTRATHECAL DRUG DELIVERY
     Route: 037
  2. BACLOFEN [Concomitant]
     Active Substance: BACLOFEN
     Indication: Pain
     Dosage: INTRATHECAL DRUG DELIVERY
     Route: 037
  3. CLONIDINE [Concomitant]
     Active Substance: CLONIDINE
     Indication: Pain
     Dosage: INTRATHECAL DRUG DELIVERY
     Route: 037

REACTIONS (2)
  - Catheter site granuloma [Recovering/Resolving]
  - Off label use [Unknown]
